FAERS Safety Report 18623945 (Version 2)
Quarter: 2020Q4

REPORT INFORMATION
  Report Type: Spontaneous
  Country: RO (occurrence: RO)
  Receive Date: 20201216
  Receipt Date: 20201218
  Transmission Date: 20210114
  Serious: Yes (Death)
  Sender: FDA-Public Use
  Company Number: RO-ROCHE-2732180

PATIENT

DRUGS (1)
  1. TECENTRIQ [Suspect]
     Active Substance: ATEZOLIZUMAB
     Indication: TRANSITIONAL CELL CARCINOMA METASTATIC
     Dosage: 1200 MG ADMINISTERED AT 3 WEEKS FOR UROTHELIAL CARCINOMA
     Route: 041

REACTIONS (1)
  - Malignant neoplasm progression [Fatal]
